FAERS Safety Report 6391021 (Version 5)
Quarter: 2019Q4

REPORT INFORMATION
  Report Type: Report from Study
  Country: HK (occurrence: HK)
  Receive Date: 20070824
  Receipt Date: 20191010
  Transmission Date: 20200122
  Serious: Yes (Death)
  Sender: FDA-Public Use
  Company Number: HK-PFIZER INC-2007067472

PATIENT
  Age: 44 Year
  Sex: Male
  Weight: 72 kg

DRUGS (4)
  1. PANADOL [Concomitant]
     Active Substance: ACETAMINOPHEN
     Indication: MUCOSAL INFLAMMATION
     Dosage: UNK
     Route: 048
     Dates: start: 20070808
  2. ATENOLOL. [Concomitant]
     Active Substance: ATENOLOL
     Indication: HYPERTENSION
     Dosage: UNK
     Route: 048
  3. SUTENT [Suspect]
     Active Substance: SUNITINIB MALATE
     Indication: METASTATIC NEOPLASM
     Dosage: 37.5 MG, 1X/DAY, CYCLIC, FOR 4 CONSECUTIVE WEEKS, EVERY 4 WEEKS
     Route: 048
     Dates: start: 20070711, end: 20070808
  4. SUTENT [Suspect]
     Active Substance: SUNITINIB MALATE
     Dosage: 25 MG, 1X/DAY, CYCLIC FOR 4 CONSECUTIVE WEEKS, EVERY 4 WEEKS
     Route: 048
     Dates: start: 20070809

REACTIONS (1)
  - Epistaxis [Fatal]

NARRATIVE: CASE EVENT DATE: 20070813
